FAERS Safety Report 8990461 (Version 1)
Quarter: 2012Q4

REPORT INFORMATION
  Report Type: Report from Study
  Country: DE (occurrence: DE)
  Receive Date: 20121228
  Receipt Date: 20121228
  Transmission Date: 20130627
  Serious: Yes (Hospitalization)
  Sender: FDA-Public Use
  Company Number: DE-BAXTER-2012BAX028124

PATIENT
  Sex: Male

DRUGS (6)
  1. ENDOXAN 1G [Suspect]
     Indication: B-CELL LYMPHOMA
     Route: 042
     Dates: start: 20120727, end: 20120727
  2. RITUXIMAB [Suspect]
     Indication: B-CELL LYMPHOMA
     Route: 042
     Dates: start: 20120725, end: 20120725
  3. PEGFILGRASTIM [Suspect]
     Indication: B-CELL LYMPHOMA
     Route: 058
     Dates: start: 20120730, end: 20120730
  4. VINCRISTINE [Suspect]
     Indication: B-CELL LYMPHOMA
     Route: 042
     Dates: start: 20120727, end: 20120727
  5. PREDNISOLONE [Suspect]
     Indication: B-CELL LYMPHOMA
     Route: 065
     Dates: start: 20120727, end: 20120731
  6. DOXORUBICIN [Suspect]
     Indication: B-CELL LYMPHOMA
     Route: 042
     Dates: start: 20120727, end: 20120727

REACTIONS (1)
  - Chills [Not Recovered/Not Resolved]
